FAERS Safety Report 9389028 (Version 2)
Quarter: 2014Q2

REPORT INFORMATION
  Report Type: Spontaneous
  Country: DK (occurrence: DK)
  Receive Date: 20130708
  Receipt Date: 20140611
  Transmission Date: 20141212
  Serious: Yes (Hospitalization, Disabling)
  Sender: FDA-Public Use
  Company Number: DK-ACTAVIS-2013-11894

PATIENT
  Age: 39 Year
  Sex: Male

DRUGS (6)
  1. IBUPROFEN (UNKNOWN) [Suspect]
     Indication: BACK PAIN
     Dosage: UNK
     Route: 065
     Dates: start: 200904
  2. DICLON                             /00372302/ [Suspect]
     Indication: BACK PAIN
     Dosage: UNK
     Route: 065
     Dates: start: 200904
  3. IBUMETIN [Suspect]
     Indication: BACK PAIN
     Dosage: UNK
     Route: 065
     Dates: start: 200904
  4. NASONEX [Concomitant]
     Indication: PRODUCT USED FOR UNKNOWN INDICATION
     Dosage: UNK
     Route: 065
  5. SINGULAIR [Concomitant]
     Indication: PRODUCT USED FOR UNKNOWN INDICATION
     Dosage: UNK
     Route: 065
  6. SYMBICORT [Concomitant]
     Indication: PRODUCT USED FOR UNKNOWN INDICATION
     Dosage: UNK; SYMBICORT TURBOHALER
     Route: 065

REACTIONS (17)
  - Bone erosion [Unknown]
  - Sinus polyp [Unknown]
  - Nasal polyps [Not Recovered/Not Resolved]
  - Hypersensitivity [Unknown]
  - Lung disorder [Unknown]
  - Asthma [Unknown]
  - Anosmia [Unknown]
  - Dyspepsia [Unknown]
  - Nasal congestion [Unknown]
  - Gastric ulcer [Unknown]
  - Sinus polyp [Unknown]
  - Eosinophilia [Unknown]
  - Abdominal tenderness [Unknown]
  - Inflammation [Unknown]
  - Dyspepsia [Unknown]
  - Vomiting [Unknown]
  - Malaise [Unknown]
